FAERS Safety Report 9479572 (Version 1)
Quarter: 2013Q3

REPORT INFORMATION
  Report Type: Spontaneous
  Country: US (occurrence: US)
  Receive Date: 20130827
  Receipt Date: 20130827
  Transmission Date: 20140515
  Serious: No
  Sender: FDA-Public Use
  Company Number: US-009507513-1308USA002180

PATIENT
  Age: 46 Year
  Sex: Female

DRUGS (4)
  1. PEGINTRON [Suspect]
     Indication: HEPATITIS C
     Dosage: 120 MICROGRAM, QW
     Route: 058
     Dates: start: 20130622
  2. RISPERDAL [Concomitant]
  3. VICTRELIS [Suspect]
     Route: 048
  4. IRON (UNSPECIFIED) [Concomitant]

REACTIONS (6)
  - Pruritus [Unknown]
  - Drug dose omission [Unknown]
  - Product quality issue [Unknown]
  - Injection site reaction [Unknown]
  - Nausea [Not Recovered/Not Resolved]
  - Inappropriate schedule of drug administration [Unknown]
